FAERS Safety Report 4669592-1 (Version None)
Quarter: 2005Q2

REPORT INFORMATION
  Report Type: 
  Country: None (occurrence: None)
  Receive Date: 20050523
  Receipt Date: 20050517
  Transmission Date: 20051028
  Serious: Yes (Hospitalization, Other)
  Sender: FDA-Public Use
  Company Number: US-ABBOTT-05P-163-0300676-00

PATIENT
  Sex: Female
  Weight: 58.112 kg

DRUGS (5)
  1. SYNTHROID [Suspect]
     Indication: HYPOTHYROIDISM
     Route: 048
     Dates: start: 20050201
  2. TOPROL-XL [Concomitant]
     Indication: BLOOD PRESSURE INCREASED
     Route: 048
     Dates: start: 20030101
  3. LISINOPRIL [Concomitant]
     Indication: BLOOD PRESSURE INCREASED
     Route: 048
     Dates: start: 19980101
  4. ASPIRIN [Concomitant]
     Indication: THROMBOSIS PROPHYLAXIS
     Route: 048
     Dates: start: 19960101
  5. ANTIBIOTICS [Concomitant]
     Indication: CYSTITIS
     Route: 042
     Dates: start: 20050417, end: 20050420

REACTIONS (4)
  - AORTIC CALCIFICATION [None]
  - CYSTITIS [None]
  - NEPHROLITHIASIS [None]
  - PYREXIA [None]
